FAERS Safety Report 10336702 (Version 2)
Quarter: 2014Q3

REPORT INFORMATION
  Report Type: Spontaneous
  Country: US (occurrence: US)
  Receive Date: 20140723
  Receipt Date: 20140723
  Transmission Date: 20150326
  Serious: No
  Sender: FDA-Public Use
  Company Number: US-UNITED THERAPEUTICS-UTC-044190

PATIENT
  Sex: Female
  Weight: 94.07 kg

DRUGS (4)
  1. REMODULIN [Suspect]
     Active Substance: TREPROSTINIL
     Dosage: 0.00125 UG/KG/MIN
     Route: 058
     Dates: start: 20140305
  2. LETAIRIS [Concomitant]
     Active Substance: AMBRISENTAN
  3. REVATIO [Concomitant]
     Active Substance: SILDENAFIL CITRATE
  4. TYVASO [Suspect]
     Active Substance: TREPROSTINIL
     Dosage: 18-54 MICROGRAMS
     Dates: start: 20140109

REACTIONS (9)
  - Dizziness [Unknown]
  - Hypotension [Unknown]
  - Joint swelling [Unknown]
  - Arthralgia [Unknown]
  - Alopecia [Unknown]
  - Musculoskeletal discomfort [Unknown]
  - Headache [Unknown]
  - Myalgia [Unknown]
  - Infusion site pain [Unknown]

NARRATIVE: CASE EVENT DATE: 2014
